FAERS Safety Report 4787649-1 (Version None)
Quarter: 2005Q3

REPORT INFORMATION
  Report Type: 
  Country: None (occurrence: None)
  Receive Date: 20050926
  Receipt Date: 20050811
  Transmission Date: 20060218
  Serious: No
  Sender: FDA-Public Use
  Company Number: 216873

PATIENT
  Age: 62 Year
  Sex: Female

DRUGS (4)
  1. AVASTIN [Suspect]
     Indication: COLORECTAL CANCER
     Dosage: Q2W
     Dates: start: 20040101
  2. FLUOROURACIL [Concomitant]
  3. CPT-11 (IRINOTECAN HYDROCHLORIDE) [Concomitant]
  4. ERBITUX (CETUXIMAB) [Concomitant]

REACTIONS (2)
  - BLOOD PRESSURE INCREASED [None]
  - DRUG INEFFECTIVE [None]
